FAERS Safety Report 7962275-1 (Version None)
Quarter: 2011Q4

REPORT INFORMATION
  Report Type: 
  Country: None (occurrence: None)
  Receive Date: 20111207
  Receipt Date: 20111205
  Transmission Date: 20120403
  Serious: Yes (Death, Hospitalization)
  Sender: FDA-Public Use
  Company Number: PHHY2011RS106240

PATIENT
  Sex: Male

DRUGS (2)
  1. CLOZAPINE [Suspect]
  2. ZOLOFT [Concomitant]
     Indication: OBSESSIVE-COMPULSIVE DISORDER

REACTIONS (2)
  - TACHYCARDIA [None]
  - DEATH [None]
